FAERS Safety Report 9172406 (Version 1)
Quarter: 2013Q1

REPORT INFORMATION
  Report Type: Spontaneous
  Country: US (occurrence: US)
  Receive Date: 20130319
  Receipt Date: 20130319
  Transmission Date: 20140127
  Serious: No
  Sender: FDA-Public Use
  Company Number: US-ASTRAZENECA-2013SE14843

PATIENT
  Age: 83 Year
  Sex: Female
  Weight: 65.8 kg

DRUGS (5)
  1. NEXIUM [Suspect]
     Indication: DYSPEPSIA
     Route: 048
     Dates: start: 2011
  2. PRILOSEC DELAYED RELEASE [Suspect]
     Route: 048
  3. PRILOSEC OTC [Suspect]
     Route: 048
  4. CHOLESTEROL MEDICINE [Concomitant]
     Indication: BLOOD CHOLESTEROL
  5. NERVE MEDICINE [Concomitant]
     Indication: NERVOUS SYSTEM DISORDER

REACTIONS (4)
  - Cardiac disorder [Not Recovered/Not Resolved]
  - Dyspepsia [Not Recovered/Not Resolved]
  - Drug ineffective [Unknown]
  - Intentional drug misuse [Not Recovered/Not Resolved]
